FAERS Safety Report 21551707 (Version 1)
Quarter: 2022Q4

REPORT INFORMATION
  Report Type: Spontaneous
  Country: US (occurrence: US)
  Receive Date: 20221103
  Receipt Date: 20221103
  Transmission Date: 20230112
  Serious: No
  Sender: FDA-Public Use
  Company Number: BI-BoehringerIngelheim-2021-BI-122040

PATIENT
  Age: 76 Year
  Sex: Female

DRUGS (1)
  1. PRADAXA [Suspect]
     Active Substance: DABIGATRAN ETEXILATE MESYLATE
     Indication: Product used for unknown indication
     Dosage: 150MG
     Route: 065

REACTIONS (3)
  - Fall [Recovered/Resolved]
  - Thrombosis [Recovered/Resolved]
  - Joint injury [Recovered/Resolved]

NARRATIVE: CASE EVENT DATE: 20200901
